FAERS Safety Report 4426619-X (Version None)
Quarter: 2004Q3

REPORT INFORMATION
  Report Type: 
  Country: None (occurrence: None)
  Receive Date: 20040812
  Receipt Date: 20040812
  Transmission Date: 20050211
  Serious: Yes (Death)
  Sender: FDA-Public Use
  Company Number: None

PATIENT
  Age: 28 Year
  Sex: Female

DRUGS (4)
  1. CLOZAPINE [Suspect]
     Indication: SCHIZOPHRENIA
     Dosage: 200MG PO IN THE AM PO 400 MG PO Q PM
     Route: 048
     Dates: start: 20040320
  2. SEROQUEL [Concomitant]
  3. LITHIUM CARBONATE [Concomitant]
  4. DDAVP [Concomitant]

REACTIONS (6)
  - CARDIOGENIC SHOCK [None]
  - CARDIOMYOPATHY [None]
  - ISCHAEMIC HEPATITIS [None]
  - MYOCARDITIS [None]
  - RENAL FAILURE [None]
  - VENTRICULAR TACHYCARDIA [None]
